FAERS Safety Report 6105899-9 (Version None)
Quarter: 2009Q1

REPORT INFORMATION
  Report Type: 
  Country: None (occurrence: None)
  Receive Date: 20090306
  Receipt Date: 20090306
  Transmission Date: 20090719
  Serious: Yes (Other)
  Sender: FDA-Public Use
  Company Number: None

PATIENT
  Age: 68 Year
  Sex: Male
  Weight: 80.2867 kg

DRUGS (1)
  1. LEVAQUIN [Suspect]
     Indication: INFLAMMATION
     Dosage: 1 PILL ONCE A DAY MOUTH
     Route: 048
     Dates: start: 20081211, end: 20090128

REACTIONS (3)
  - ARTHRALGIA [None]
  - ARTHROPATHY [None]
  - JOINT CREPITATION [None]
